FAERS Safety Report 12140193 (Version 1)
Quarter: 2016Q1

REPORT INFORMATION
  Report Type: Spontaneous
  Country: DE (occurrence: DE)
  Receive Date: 20160303
  Receipt Date: 20160303
  Transmission Date: 20160526
  Serious: Yes (Other)
  Sender: FDA-Public Use
  Company Number: ALCN2015DE007867

PATIENT
  Sex: Female

DRUGS (1)
  1. TRAVATAN [Suspect]
     Active Substance: TRAVOPROST
     Indication: INTRAOCULAR PRESSURE INCREASED
     Dosage: UNK
     Route: 047

REACTIONS (17)
  - Dry eye [Unknown]
  - Skin discolouration [Unknown]
  - Growth of eyelashes [Unknown]
  - Drug intolerance [Unknown]
  - Angina pectoris [Unknown]
  - Depression [Unknown]
  - Photopsia [Unknown]
  - Asthma [Unknown]
  - Arthralgia [Unknown]
  - Chest discomfort [Unknown]
  - Eye irritation [Unknown]
  - Anxiety [Unknown]
  - Gliosis [Unknown]
  - Wheezing [Unknown]
  - Chest pain [Unknown]
  - Dyspnoea [Unknown]
  - Tinnitus [Unknown]
